FAERS Safety Report 7797493-9 (Version None)
Quarter: 2011Q4

REPORT INFORMATION
  Report Type: 
  Country: None (occurrence: None)
  Receive Date: 20111005
  Receipt Date: 20110928
  Transmission Date: 20120403
  Serious: Yes (Disabling, Other)
  Sender: FDA-Public Use
  Company Number: US-ABBOTT-11P-163-0860171-00

PATIENT
  Age: 51 Year
  Sex: Female

DRUGS (20)
  1. FOSAMAX [Concomitant]
     Indication: OSTEOPENIA
     Dosage: EVERY SUNDAY
     Route: 048
  2. HUMIRA [Suspect]
     Indication: PSORIASIS
     Dates: start: 20101024
  3. TRAZODONE HYDROCHLORIDE [Concomitant]
     Indication: PRODUCT USED FOR UNKNOWN INDICATION
  4. NASAL SPRAY [Concomitant]
     Indication: HYPERSENSITIVITY
  5. CYMBALTA [Concomitant]
     Indication: DEPRESSION
     Route: 048
  6. MAGNESIUM [Concomitant]
     Indication: MINERAL SUPPLEMENTATION
     Route: 048
  7. HUMIRA [Suspect]
     Indication: PSORIATIC ARTHROPATHY
  8. VITAMIN D [Concomitant]
     Indication: VITAMIN D DEFICIENCY
     Dosage: DAILY
     Route: 048
  9. FOLIC ACID [Concomitant]
     Indication: VITAMIN SUPPLEMENTATION
     Route: 048
  10. DILTIAZEM HCL [Concomitant]
     Indication: PRODUCT USED FOR UNKNOWN INDICATION
     Route: 048
  11. CALCIUM CARBONATE [Concomitant]
     Indication: MINERAL SUPPLEMENTATION
     Route: 048
  12. METHOTREXATE [Concomitant]
     Indication: PSORIASIS
     Dosage: WEEKLY
     Route: 048
  13. VOLTAREN [Concomitant]
     Indication: PRODUCT USED FOR UNKNOWN INDICATION
     Dosage: GEL, APPLIES TO WRISTS FOUR TIME A DAY
     Route: 061
  14. MULTI-VITAMINS [Concomitant]
     Indication: VITAMIN SUPPLEMENTATION
     Route: 048
  15. CETIRIZINE HCL [Concomitant]
     Indication: HYPERSENSITIVITY
     Route: 048
  16. PROZAC [Concomitant]
     Indication: PRODUCT USED FOR UNKNOWN INDICATION
  17. NABUMETONE [Concomitant]
     Indication: ARTHRITIS
     Route: 048
  18. PROZAC [Concomitant]
     Dosage: TO WEAN OFF
  19. ZINC [Concomitant]
     Indication: MINERAL SUPPLEMENTATION
     Route: 048
  20. LISINOPRIL [Concomitant]
     Indication: BLOOD PRESSURE
     Route: 048

REACTIONS (13)
  - DRUG INEFFECTIVE [None]
  - BLOOD CHOLESTEROL INCREASED [None]
  - OSTEOMALACIA [None]
  - CANDIDIASIS [None]
  - PSORIATIC ARTHROPATHY [None]
  - STREPTOCOCCAL INFECTION [None]
  - OSTEOPOROSIS [None]
  - GASTROOESOPHAGEAL REFLUX DISEASE [None]
  - VISUAL IMPAIRMENT [None]
  - GAIT DISTURBANCE [None]
  - BARRETT'S OESOPHAGUS [None]
  - ARTHRALGIA [None]
  - INTRAOCULAR PRESSURE INCREASED [None]
